FAERS Safety Report 10923762 (Version 1)
Quarter: 2015Q1

REPORT INFORMATION
  Report Type: Report from Study
  Country: CA (occurrence: CA)
  Receive Date: 20150318
  Receipt Date: 20150318
  Transmission Date: 20150721
  Serious: Yes (Other)
  Sender: FDA-Public Use
  Company Number: CA-ROCHE-1371692

PATIENT
  Age: 59 Year
  Sex: Female
  Weight: 76 kg

DRUGS (9)
  1. METHYLPREDNISOLONE. [Concomitant]
     Active Substance: METHYLPREDNISOLONE
     Route: 042
     Dates: start: 20120216
  2. CIPRALEX [Concomitant]
     Active Substance: ESCITALOPRAM OXALATE
  3. RITUXAN [Suspect]
     Active Substance: RITUXIMAB
     Indication: SJOGREN^S SYNDROME
     Route: 042
     Dates: start: 20120216
  4. ZENHALE [Concomitant]
     Active Substance: FORMOTEROL FUMARATE\MOMETASONE FUROATE
  5. ACETAMINOPHEN. [Concomitant]
     Active Substance: ACETAMINOPHEN
     Route: 048
     Dates: start: 20120216
  6. ATIVAN [Concomitant]
     Active Substance: LORAZEPAM
  7. DIPHENHYDRAMINE HCL [Concomitant]
     Active Substance: DIPHENHYDRAMINE HYDROCHLORIDE
     Route: 048
     Dates: start: 20120216
  8. SALAGEN [Suspect]
     Active Substance: PILOCARPINE HYDROCHLORIDE
     Indication: SJOGREN^S SYNDROME
     Route: 065
  9. NEXIUM [Concomitant]
     Active Substance: ESOMEPRAZOLE MAGNESIUM

REACTIONS (14)
  - Pneumonia [Unknown]
  - Chest discomfort [Unknown]
  - Dyspnoea [Not Recovered/Not Resolved]
  - Laryngeal disorder [Unknown]
  - Drug hypersensitivity [Unknown]
  - Fatigue [Recovered/Resolved]
  - Weight increased [Unknown]
  - Off label use [Unknown]
  - Dyspnoea [Unknown]
  - Sleep apnoea syndrome [Unknown]
  - Chest discomfort [Not Recovered/Not Resolved]
  - Sjogren^s syndrome [Unknown]
  - Productive cough [Not Recovered/Not Resolved]
  - Infusion related reaction [Recovered/Resolved]

NARRATIVE: CASE EVENT DATE: 2014
